FAERS Safety Report 18887559 (Version 3)
Quarter: 2021Q1

REPORT INFORMATION
  Report Type: Report from Study
  Country: IT (occurrence: IT)
  Receive Date: 20210212
  Receipt Date: 20210311
  Transmission Date: 20210420
  Serious: Yes (Hospitalization, Other)
  Sender: FDA-Public Use
  Company Number: IT-PFIZER INC-2021145728

PATIENT
  Age: 16 Year
  Sex: Female
  Weight: 52 kg

DRUGS (21)
  1. EMAPALUMAB [Suspect]
     Active Substance: EMAPALUMAB
     Indication: STILL^S DISEASE
     Dosage: 150 MG
     Route: 041
     Dates: start: 20201228, end: 20201228
  2. EMAPALUMAB [Suspect]
     Active Substance: EMAPALUMAB
     Dosage: 150 MG
     Route: 041
     Dates: start: 20201231, end: 20201231
  3. CARVEDILOL. [Concomitant]
     Active Substance: CARVEDILOL
     Indication: HYPERTENSION
     Dates: start: 20201212
  4. OMEPRAZOLE. [Concomitant]
     Active Substance: OMEPRAZOLE
     Indication: GASTRITIS PROPHYLAXIS
     Dates: start: 20200106
  5. METHYLPREDNISOLONE. [Suspect]
     Active Substance: METHYLPREDNISOLONE
     Indication: HAEMOPHAGOCYTIC LYMPHOHISTIOCYTOSIS
     Dosage: UNK
  6. EMAPALUMAB [Suspect]
     Active Substance: EMAPALUMAB
     Dosage: 150 MG
     Route: 041
     Dates: start: 20201224, end: 20201224
  7. EMAPALUMAB [Suspect]
     Active Substance: EMAPALUMAB
     Dosage: 300 MG
     Route: 041
     Dates: start: 20201212, end: 20201212
  8. ACICLOVIR [Concomitant]
     Active Substance: ACYCLOVIR
     Indication: PROPHYLAXIS
     Dates: start: 20201211
  9. EMAPALUMAB [Suspect]
     Active Substance: EMAPALUMAB
     Dosage: 150 MG
     Route: 041
     Dates: start: 20201221, end: 20201221
  10. EMAPALUMAB [Suspect]
     Active Substance: EMAPALUMAB
     Dosage: UNK
     Route: 041
     Dates: start: 20210125
  11. ANAKINRA [Suspect]
     Active Substance: ANAKINRA
     Indication: STILL^S DISEASE
     Dosage: UNK
     Dates: start: 20201206
  12. EMAPALUMAB [Suspect]
     Active Substance: EMAPALUMAB
     Indication: HAEMOPHAGOCYTIC LYMPHOHISTIOCYTOSIS
     Dosage: 150 MG
     Route: 041
     Dates: start: 20201215, end: 20201215
  13. EMAPALUMAB [Suspect]
     Active Substance: EMAPALUMAB
     Dosage: 150 MG
     Route: 041
     Dates: start: 20210104, end: 20210104
  14. CYCLOSPORINE. [Suspect]
     Active Substance: CYCLOSPORINE
     Indication: HAEMOPHAGOCYTIC LYMPHOHISTIOCYTOSIS
     Dosage: UNK
     Dates: start: 20201206
  15. EMAPALUMAB [Suspect]
     Active Substance: EMAPALUMAB
     Dosage: 150 MG
     Route: 041
     Dates: start: 20201218, end: 20201218
  16. METHYLPREDNISOLONE. [Suspect]
     Active Substance: METHYLPREDNISOLONE
     Indication: STILL^S DISEASE
     Dosage: UNK
     Dates: start: 20201206, end: 20210108
  17. CHOLECALCIFEROL [Concomitant]
     Active Substance: CHOLECALCIFEROL
     Indication: SUPPLEMENTATION THERAPY
     Dates: start: 20180803
  18. ANAKINRA [Suspect]
     Active Substance: ANAKINRA
     Indication: HAEMOPHAGOCYTIC LYMPHOHISTIOCYTOSIS
     Dosage: UNK
  19. CYCLOSPORINE. [Suspect]
     Active Substance: CYCLOSPORINE
     Dosage: UNK
  20. EMAPALUMAB [Suspect]
     Active Substance: EMAPALUMAB
     Dosage: 150 MG
     Route: 041
     Dates: start: 20200104, end: 20200104
  21. FLUCONAZOLE. [Concomitant]
     Active Substance: FLUCONAZOLE
     Indication: PROPHYLAXIS
     Dates: start: 20201211

REACTIONS (2)
  - Salmonella test positive [Recovered/Resolved]
  - Pneumonia legionella [Recovering/Resolving]

NARRATIVE: CASE EVENT DATE: 20210108
